FAERS Safety Report 6047211-X (Version None)
Quarter: 2009Q1

REPORT INFORMATION
  Report Type: 
  Country: None (occurrence: None)
  Receive Date: 20090121
  Receipt Date: 20080821
  Transmission Date: 20090719
  Serious: Yes (Hospitalization)
  Sender: FDA-Public Use
  Company Number: A-US2007-17845

PATIENT
  Age: 81 Year
  Sex: Male
  Weight: 77.6 kg

DRUGS (1)
  1. TRACLEER [Suspect]
     Indication: PULMONARY HYPERTENSION
     Dosage: 62.5 MG, BID, ORAL
     Route: 048
     Dates: end: 20070101

REACTIONS (5)
  - FATIGUE [None]
  - HEART RATE IRREGULAR [None]
  - HOT FLUSH [None]
  - OEDEMA PERIPHERAL [None]
  - TACHYCARDIA [None]
